APPROVED DRUG PRODUCT: DIAZEPAM
Active Ingredient: DIAZEPAM
Strength: 5MG
Dosage Form/Route: TABLET;ORAL
Application: A070463 | Product #001
Applicant: VIRTUS PHARMACEUTICALS LLC
Approved: Feb 25, 1986 | RLD: No | RS: No | Type: DISCN